FAERS Safety Report 25219434 (Version 2)
Quarter: 2025Q2

REPORT INFORMATION
  Report Type: Spontaneous
  Country: JP (occurrence: JP)
  Receive Date: 20250421
  Receipt Date: 20250506
  Transmission Date: 20250716
  Serious: Yes (Other)
  Sender: VERICEL
  Company Number: JP-VERICEL-JP-VCEL-25-000107

PATIENT
  Age: 77 Year
  Sex: Male

DRUGS (4)
  1. BROMELAINS [Suspect]
     Active Substance: BROMELAINS
     Indication: Burns second degree
     Route: 061
  2. BROMELAINS [Suspect]
     Active Substance: BROMELAINS
     Indication: Burns third degree
  3. TRAFERMIN [Concomitant]
     Active Substance: TRAFERMIN
     Indication: Burns second degree
     Route: 061
  4. TRAFERMIN [Concomitant]
     Active Substance: TRAFERMIN
     Indication: Burns third degree

REACTIONS (5)
  - Septic coagulopathy [Unknown]
  - Ileus paralytic [Unknown]
  - Device related bacteraemia [Unknown]
  - Cerebral infarction [Unknown]
  - Renal disorder [Unknown]
